FAERS Safety Report 23291012 (Version 2)
Quarter: 2023Q4

REPORT INFORMATION
  Report Type: Report from Study
  Country: US (occurrence: US)
  Receive Date: 20231213
  Receipt Date: 20231225
  Transmission Date: 20240109
  Serious: Yes (Hospitalization, Other)
  Sender: FDA-Public Use
  Company Number: US-ABBVIE-5527216

PATIENT
  Age: 62 Year
  Sex: Male

DRUGS (2)
  1. DUOPA [Suspect]
     Active Substance: CARBIDOPA\LEVODOPA
     Indication: Parkinson^s disease
     Route: 050
     Dates: start: 20210908, end: 20231215
  2. DUOPA [Suspect]
     Active Substance: CARBIDOPA\LEVODOPA

REACTIONS (6)
  - Hospitalisation [Unknown]
  - Behaviour disorder [Not Recovered/Not Resolved]
  - Seizure [Unknown]
  - Mobility decreased [Not Recovered/Not Resolved]
  - Malaise [Unknown]
  - Dyskinesia [Unknown]

NARRATIVE: CASE EVENT DATE: 20231125
